FAERS Safety Report 5330277-X (Version None)
Quarter: 2007Q2

REPORT INFORMATION
  Report Type: 
  Country: None (occurrence: None)
  Receive Date: 20070227
  Receipt Date: 20060829
  Transmission Date: 20071010
  Serious: Yes (Other)
  Sender: FDA-Public Use
  Company Number: 461357

PATIENT
  Age: 16 Year
  Sex: Male
  Weight: 102.1 kg

DRUGS (1)
  1. ACCUTANE [Suspect]
     Indication: ACNE
     Dosage: 2 DOSE FORM DAILY ORAL
     Route: 048
     Dates: start: 20011023, end: 20011123

REACTIONS (1)
  - GRAND MAL CONVULSION [None]
